FAERS Safety Report 16857371 (Version 2)
Quarter: 2019Q3

REPORT INFORMATION
  Report Type: Spontaneous
  Country: US (occurrence: US)
  Receive Date: 20190926
  Receipt Date: 20190930
  Transmission Date: 20191005
  Serious: Yes (Other)
  Sender: FDA-Public Use
  Company Number: US-PFIZER INC-2019416939

PATIENT
  Age: 71 Year
  Sex: Male
  Weight: 104.33 kg

DRUGS (1)
  1. DOXAZOSIN MESILATE [Suspect]
     Active Substance: DOXAZOSIN MESYLATE
     Indication: BLOOD PRESSURE MEASUREMENT
     Dosage: 2 MG, 3X/DAY (EVERY 8 HOURS)
     Route: 048
     Dates: start: 2013, end: 201909

REACTIONS (5)
  - Hypertension [Unknown]
  - Head discomfort [Unknown]
  - Blood pressure fluctuation [Unknown]
  - Tremor [Unknown]
  - Drug ineffective [Unknown]
